FAERS Safety Report 21434580 (Version 1)
Quarter: 2022Q4

REPORT INFORMATION
  Report Type: Spontaneous
  Country: US (occurrence: US)
  Receive Date: 20221010
  Receipt Date: 20221010
  Transmission Date: 20230113
  Serious: Yes (Hospitalization, Disabling, Other)
  Sender: FDA-Public Use
  Company Number: US-MERCK-1205USA04984

PATIENT
  Sex: Female
  Weight: 72.562 kg

DRUGS (21)
  1. FOSAMAX [Suspect]
     Active Substance: ALENDRONATE SODIUM
     Indication: Osteopenia
     Dosage: 70 MG, QW
     Route: 048
     Dates: end: 2008
  2. FOSAMAX [Suspect]
     Active Substance: ALENDRONATE SODIUM
     Indication: Osteoporosis
     Dosage: UNK
     Route: 048
     Dates: start: 199705, end: 19980504
  3. FOSAMAX [Suspect]
     Active Substance: ALENDRONATE SODIUM
     Dosage: 10 MG 1 DAILY
  4. FOSAMAX PLUS D [Suspect]
     Active Substance: ALENDRONATE SODIUM\CHOLECALCIFEROL
     Indication: Osteopenia
     Dosage: 70 MG, QW
     Route: 048
     Dates: end: 2008
  5. FOSAMAX PLUS D [Suspect]
     Active Substance: ALENDRONATE SODIUM\CHOLECALCIFEROL
     Indication: Osteoporosis
  6. PREMARIN [Concomitant]
     Active Substance: ESTROGENS, CONJUGATED
  7. NAPROSYN [Concomitant]
     Active Substance: NAPROXEN
  8. TRAMADOL HYDROCHLORIDE [Concomitant]
     Active Substance: TRAMADOL HYDROCHLORIDE
  9. TUMS [Concomitant]
     Active Substance: CALCIUM CARBONATE
  10. ATARAX [Concomitant]
     Active Substance: HYDROXYZINE HYDROCHLORIDE
     Indication: Dermatitis allergic
     Dosage: 20 MG, TID
  11. ATARAX [Concomitant]
     Active Substance: HYDROXYZINE HYDROCHLORIDE
     Dosage: 40 MG, TID
  12. ATARAX [Concomitant]
     Active Substance: HYDROXYZINE HYDROCHLORIDE
     Dosage: 50 MG, QID
  13. SARNA [CAMPHOR;MENTHOL;PHENOL] [Concomitant]
     Indication: Dermatitis allergic
     Dosage: 1-2 TIMES A DAY
     Route: 061
  14. ARISTOCORT [TRIAMCINOLONE] [Concomitant]
     Indication: Dermatitis allergic
     Dosage: 1-2 TIMES A DAY
     Route: 061
  15. CALCIUM;VITAMIN D NOS [Concomitant]
     Indication: Osteoporosis
     Dosage: BID
  16. DOCUSATE [Concomitant]
     Active Substance: DOCUSATE
     Dosage: 2 PER DAY
  17. OMEPRAZOLE [Concomitant]
     Active Substance: OMEPRAZOLE
     Dosage: 20 MG DAILY
  18. LORTAB [Concomitant]
     Active Substance: ACETAMINOPHEN\HYDROCODONE BITARTRATE
     Dosage: ONE OR TWO EVERY SIX HOURS
  19. TOPROL XL [Concomitant]
     Active Substance: METOPROLOL SUCCINATE
     Dosage: 50 MILLIGRAM, QD
  20. ARTHROTEC [Concomitant]
     Active Substance: DICLOFENAC SODIUM\MISOPROSTOL
     Dosage: UNK, TID
  21. LYRICA [Concomitant]
     Active Substance: PREGABALIN
     Dosage: 75 MILLIGRAM, QD

REACTIONS (55)
  - Femur fracture [Unknown]
  - Intramedullary rod insertion [Unknown]
  - Fracture nonunion [Unknown]
  - Bone graft [Unknown]
  - Internal fixation of fracture [Unknown]
  - Fracture nonunion [Unknown]
  - Hip arthroplasty [Unknown]
  - Carpal tunnel decompression [Unknown]
  - Carpal tunnel decompression [Unknown]
  - Spinal operation [Unknown]
  - Scoliosis surgery [Unknown]
  - Knee arthroplasty [Unknown]
  - Hip arthroplasty [Unknown]
  - Urinary bladder suspension [Unknown]
  - Depression [Unknown]
  - Fracture nonunion [Unknown]
  - Vitamin D deficiency [Unknown]
  - Calcium deficiency [Unknown]
  - Rheumatoid arthritis [Unknown]
  - Biopsy breast [Unknown]
  - Biopsy breast [Unknown]
  - Complex regional pain syndrome [Unknown]
  - Hypertension [Unknown]
  - Cellulitis [Recovered/Resolved]
  - Inflammation [Recovered/Resolved]
  - Osteoarthritis [Unknown]
  - Anaemia postoperative [Unknown]
  - Device breakage [Unknown]
  - Medical device removal [Unknown]
  - Device failure [Unknown]
  - Device breakage [Unknown]
  - Haemoglobin decreased [Unknown]
  - Decreased appetite [Unknown]
  - Blood glucose decreased [Recovered/Resolved]
  - Intervertebral disc degeneration [Unknown]
  - Fibrocystic breast disease [Unknown]
  - Large intestine polyp [Recovered/Resolved]
  - Diastolic dysfunction [Unknown]
  - Localised infection [Recovered/Resolved]
  - Enostosis [Unknown]
  - Facet joint syndrome [Unknown]
  - Salivary gland operation [Unknown]
  - Neuropathy peripheral [Unknown]
  - Benign hepatic neoplasm [Unknown]
  - Bladder prolapse [Unknown]
  - Scoliosis [Unknown]
  - Back pain [Not Recovered/Not Resolved]
  - Oedema peripheral [Not Recovered/Not Resolved]
  - Hip fracture [Recovering/Resolving]
  - Cyst [Unknown]
  - Joint swelling [Unknown]
  - Haemorrhoids [Unknown]
  - Contusion [Recovering/Resolving]
  - Swelling face [Unknown]
  - Salivary gland disorder [Unknown]

NARRATIVE: CASE EVENT DATE: 19990101
